FAERS Safety Report 6292224-6 (Version None)
Quarter: 2009Q3

REPORT INFORMATION
  Report Type: 
  Country: None (occurrence: None)
  Receive Date: 20090731
  Receipt Date: 20090731
  Transmission Date: 20100115
  Serious: Yes (Death)
  Sender: FDA-Public Use
  Company Number: PHEH2007US08514

PATIENT
  Sex: Male

DRUGS (2)
  1. PLACEBO COMP-PLA+ [Suspect]
     Indication: RENAL CANCER METASTATIC
     Dosage: UNK
     Route: 048
  2. ZOMETA [Suspect]

REACTIONS (3)
  - DEATH [None]
  - FATIGUE [None]
  - PYREXIA [None]
